FAERS Safety Report 13705574 (Version 2)
Quarter: 2017Q3

REPORT INFORMATION
  Report Type: Spontaneous
  Country: CA (occurrence: CA)
  Receive Date: 20170630
  Receipt Date: 20170801
  Transmission Date: 20171127
  Serious: Yes (Other)
  Sender: FDA-Public Use
  Company Number: CA-JNJFOC-20170626959

PATIENT
  Sex: Male

DRUGS (4)
  1. HALOPERIDOL. [Suspect]
     Active Substance: HALOPERIDOL
     Indication: SCHIZOPHRENIA
     Route: 065
  2. ZYPREXA [Suspect]
     Active Substance: OLANZAPINE
     Indication: SCHIZOPHRENIA
     Route: 065
  3. ABILIFY [Suspect]
     Active Substance: ARIPIPRAZOLE
     Indication: SCHIZOPHRENIA
     Dosage: 15 (UNITS UNSPECIFIED) FOR 2 YEARS
     Route: 065
  4. HALDOL [Suspect]
     Active Substance: HALOPERIDOL
     Indication: SCHIZOPHRENIA
     Route: 065

REACTIONS (14)
  - Sedation [Unknown]
  - Sleep apnoea syndrome [Unknown]
  - Dyslipidaemia [Unknown]
  - Dystonia [Unknown]
  - Diabetes mellitus [Unknown]
  - Dyskinesia [Unknown]
  - Psychosexual disorder [Unknown]
  - Blood prolactin abnormal [Unknown]
  - Metabolic syndrome [Unknown]
  - Gynaecomastia [Unknown]
  - Cognitive disorder [Unknown]
  - Parkinsonism [Unknown]
  - Obesity [Unknown]
  - Akathisia [Unknown]
